FAERS Safety Report 10757577 (Version 1)
Quarter: 2015Q1

REPORT INFORMATION
  Report Type: Spontaneous
  Country: US (occurrence: None)
  Receive Date: 20150202
  Receipt Date: 20150202
  Transmission Date: 20150721
  Serious: No
  Sender: FDA-Public Use
  Company Number: None

PATIENT
  Age: 41 Year
  Sex: Female
  Weight: 61.24 kg

DRUGS (1)
  1. MIRENA [Suspect]
     Active Substance: LEVONORGESTREL
     Dates: end: 20150131

REACTIONS (11)
  - Pelvic pain [None]
  - Dry eye [None]
  - Suicidal ideation [None]
  - Insomnia [None]
  - Muscle spasms [None]
  - Libido decreased [None]
  - Malaise [None]
  - Abdominal distension [None]
  - Depression [None]
  - Vaginal discharge [None]
  - Weight increased [None]
